FAERS Safety Report 9317937 (Version 2)
Quarter: 2013Q3

REPORT INFORMATION
  Report Type: Spontaneous
  Country: AT (occurrence: AT)
  Receive Date: 20130530
  Receipt Date: 20130724
  Transmission Date: 20140515
  Serious: Yes (Other)
  Sender: FDA-Public Use
  Company Number: AT-BRISTOL-MYERS SQUIBB COMPANY-18946426

PATIENT
  Age: 53 Year
  Sex: Male
  Weight: 98 kg

DRUGS (1)
  1. BYDUREON [Suspect]
     Dates: start: 20130418

REACTIONS (2)
  - Erectile dysfunction [Recovered/Resolved]
  - Weight decreased [Unknown]
